FAERS Safety Report 14609973 (Version 1)
Quarter: 2018Q1

REPORT INFORMATION
  Report Type: Spontaneous
  Country: US (occurrence: US)
  Receive Date: 20180307
  Receipt Date: 20180307
  Transmission Date: 20180509
  Serious: Yes (Death)
  Sender: FDA-Public Use
  Company Number: None

PATIENT
  Age: 36 Year
  Sex: Female

DRUGS (5)
  1. TEMOZOLOMIDE. [Concomitant]
     Active Substance: TEMOZOLOMIDE
     Dates: start: 20170228
  2. PREDNISONE. [Concomitant]
     Active Substance: PREDNISONE
  3. TAFINLAR [Suspect]
     Active Substance: DABRAFENIB MESYLATE
     Indication: METASTATIC NEOPLASM
     Route: 048
     Dates: start: 20170116
  4. MEKINIST [Concomitant]
     Active Substance: TRAMETINIB DIMETHYL SULFOXIDE
     Dates: start: 20170116
  5. XGEVA [Concomitant]
     Active Substance: DENOSUMAB

REACTIONS (1)
  - Death [None]

NARRATIVE: CASE EVENT DATE: 20180222
